FAERS Safety Report 6033910-2 (Version None)
Quarter: 2009Q1

REPORT INFORMATION
  Report Type: 
  Country: None (occurrence: None)
  Receive Date: 20090112
  Receipt Date: 20090107
  Transmission Date: 20090719
  Serious: Yes (Hospitalization)
  Sender: FDA-Public Use
  Company Number: JP-ASTRAZENECA-2008AP06415

PATIENT
  Age: 57 Year
  Sex: Female
  Weight: 59 kg

DRUGS (5)
  1. IRESSA [Suspect]
     Indication: LUNG ADENOCARCINOMA
     Route: 048
     Dates: start: 20080604, end: 20080717
  2. MYSLEE [Concomitant]
     Indication: INSOMNIA
     Dosage: DOSE UNKNOWN
     Route: 048
     Dates: start: 20080127
  3. ALLELOCK [Concomitant]
     Indication: RASH
     Dosage: DOSE UNKNOWN
     Route: 048
     Dates: start: 20080228
  4. HIBON [Concomitant]
     Indication: RASH
     Dosage: DOSE UNKNOWN
     Route: 048
     Dates: start: 20080303
  5. PYDOXAL [Concomitant]
     Indication: RASH
     Dosage: DOSE UNKNOWN
     Route: 048
     Dates: start: 20080303

REACTIONS (2)
  - HEPATIC FUNCTION ABNORMAL [None]
  - RASH [None]
